FAERS Safety Report 14270471 (Version 2)
Quarter: 2017Q4

REPORT INFORMATION
  Report Type: Spontaneous
  Country: SE (occurrence: SE)
  Receive Date: 20171211
  Receipt Date: 20171219
  Transmission Date: 20180321
  Serious: Yes (Hospitalization, Other)
  Sender: FDA-Public Use
  Company Number: SE-OTSUKA-2016_006925

PATIENT
  Age: 30 Year
  Sex: Female

DRUGS (1)
  1. ABILIFY [Suspect]
     Active Substance: ARIPIPRAZOLE
     Indication: MANIA
     Dosage: 15 MG, QD
     Route: 065
     Dates: start: 2012, end: 201310

REACTIONS (1)
  - Rebound psychosis [Not Recovered/Not Resolved]

NARRATIVE: CASE EVENT DATE: 201311
